FAERS Safety Report 5776760-4 (Version None)
Quarter: 2008Q2

REPORT INFORMATION
  Report Type: 
  Country: None (occurrence: None)
  Receive Date: 20080618
  Receipt Date: 20080403
  Transmission Date: 20081010
  Serious: No
  Sender: FDA-Public Use
  Company Number: US-ASTRAZENECA-2008UW06773

PATIENT
  Age: 43 Year
  Sex: Male
  Weight: 122.5 kg

DRUGS (4)
  1. SYMBICORT [Suspect]
     Indication: CHRONIC OBSTRUCTIVE PULMONARY DISEASE
     Dosage: 160/4.5 MCG 1 PUFF TWICE A DAY
     Route: 055
  2. CLARITIN D OTC [Concomitant]
  3. SPIRIVA [Concomitant]
  4. MULTI-VITAMIN [Concomitant]

REACTIONS (1)
  - ECZEMA [None]
